FAERS Safety Report 9364266 (Version 1)
Quarter: 2013Q2

REPORT INFORMATION
  Report Type: Spontaneous
  Country: US (occurrence: US)
  Receive Date: 20130624
  Receipt Date: 20130624
  Transmission Date: 20140414
  Serious: Yes (Disabling)
  Sender: FDA-Public Use
  Company Number: US-MUTUAL PHARMACEUTICAL COMPANY, INC.-MTCD20130010

PATIENT
  Sex: Female

DRUGS (4)
  1. METOCLOPRAMIDE [Suspect]
     Route: 048
     Dates: start: 200809, end: 200903
  2. METOCLOPRAMIDE [Suspect]
     Route: 048
     Dates: start: 200001, end: 200912
  3. REGLAN [Suspect]
     Route: 048
     Dates: start: 200809, end: 200903
  4. REGLAN [Suspect]
     Route: 048
     Dates: start: 200001, end: 200912

REACTIONS (2)
  - Tardive dyskinesia [None]
  - Extrapyramidal disorder [None]
